FAERS Safety Report 6228148-X (Version None)
Quarter: 2009Q2

REPORT INFORMATION
  Report Type: 
  Country: None (occurrence: None)
  Receive Date: 20090612
  Receipt Date: 20090609
  Transmission Date: 20091009
  Serious: Yes (Hospitalization, Disabling)
  Sender: FDA-Public Use
  Company Number: CH-BRISTOL-MYERS SQUIBB COMPANY-14629034

PATIENT
  Age: 68 Year
  Sex: Female

DRUGS (18)
  1. IXEMPRA KIT [Suspect]
     Indication: BREAST CANCER
     Dosage: INITIATED ON 21APR09 AT A DOSE OF 10 MG IXABEPILONE INTRAVENOUSLY (IV) GIVEN OVER 3 HOURS.
     Route: 042
     Dates: start: 20090421, end: 20090515
  2. IXEMPRA KIT [Suspect]
     Indication: BREAST CANCER METASTATIC
     Dosage: INITIATED ON 21APR09 AT A DOSE OF 10 MG IXABEPILONE INTRAVENOUSLY (IV) GIVEN OVER 3 HOURS.
     Route: 042
     Dates: start: 20090421, end: 20090515
  3. DEANXIT [Concomitant]
     Dosage: 2 DF = 2TABLETS
  4. AXOTIDE [Concomitant]
     Dosage: FORMULATION = SPRAY
  5. SERETIDE [Concomitant]
     Dosage: SPRAY
  6. NORVASC [Concomitant]
     Dosage: 1 DF = 5(UNIT NOT SPECIFIED);
  7. DIOVAN [Concomitant]
     Dosage: 1 DF = 80(UNIT NOT SPECIFIED); FREQUENCY:1.5/DAY
  8. MS CONTIN [Concomitant]
     Dosage: 1 DF = 30-30MG
     Route: 048
  9. LAXOBERON [Concomitant]
  10. FRAXIFORTE [Concomitant]
     Dosage: 1 DF = 1 INJECTION; FRAXIFORTE 0.8
  11. CIPRALEX [Concomitant]
     Dosage: 1 TABLET
     Route: 048
  12. PREDNISONE [Concomitant]
  13. TAVEGYL [Concomitant]
     Indication: PREMEDICATION
  14. NAVOBAN [Concomitant]
     Indication: PREMEDICATION
  15. MEPHAMESON [Concomitant]
     Indication: PREMEDICATION
  16. RANITIDINE [Concomitant]
     Indication: PREMEDICATION
  17. MEGESTAT OS [Concomitant]
     Route: 048
  18. ZOMETA [Concomitant]
     Route: 042

REACTIONS (2)
  - DEAFNESS BILATERAL [None]
  - GASTROINTESTINAL DISORDER [None]
